FAERS Safety Report 5572308-8 (Version None)
Quarter: 2007Q4

REPORT INFORMATION
  Report Type: 
  Country: None (occurrence: None)
  Receive Date: 20071221
  Receipt Date: 20071209
  Transmission Date: 20080405
  Serious: Yes (Hospitalization, Other)
  Sender: FDA-Public Use
  Company Number: US-PFIZER INC-2007105419

PATIENT
  Sex: Male
  Weight: 98.9 kg

DRUGS (1)
  1. CHANTIX [Suspect]
     Indication: SMOKING CESSATION THERAPY
     Dates: start: 20071115, end: 20070101

REACTIONS (8)
  - EYE INFECTION [None]
  - FIBROMYALGIA [None]
  - ILL-DEFINED DISORDER [None]
  - IMMUNE SYSTEM DISORDER [None]
  - LUPUS-LIKE SYNDROME [None]
  - PYREXIA [None]
  - RETINAL DETACHMENT [None]
  - SJOGREN'S SYNDROME [None]
